FAERS Safety Report 25049642 (Version 3)
Quarter: 2025Q2

REPORT INFORMATION
  Report Type: Spontaneous
  Country: JP (occurrence: JP)
  Receive Date: 20250307
  Receipt Date: 20250609
  Transmission Date: 20250716
  Serious: Yes (Hospitalization)
  Sender: EISAI
  Company Number: JP-Eisai-202415875_LEN-EC_P_1

PATIENT
  Sex: Female

DRUGS (2)
  1. LENVIMA [Suspect]
     Active Substance: LENVATINIB
     Indication: Endometrial cancer
     Route: 048
     Dates: start: 20250210, end: 20250214
  2. KEYTRUDA [Suspect]
     Active Substance: PEMBROLIZUMAB
     Indication: Endometrial cancer
     Dosage: 1 COURSES
     Dates: start: 20250210, end: 2025

REACTIONS (7)
  - Hyponatraemia [Recovered/Resolved]
  - Nausea [Recovered/Resolved]
  - Electrolyte depletion [Recovered/Resolved]
  - Apathy [Recovered/Resolved]
  - Urine output increased [Recovered/Resolved]
  - Decreased appetite [Recovered/Resolved]
  - Urine sodium increased [Recovered/Resolved]

NARRATIVE: CASE EVENT DATE: 20250201
